FAERS Safety Report 25376617 (Version 1)
Quarter: 2025Q2

REPORT INFORMATION
  Report Type: Report from Study
  Country: AR (occurrence: AR)
  Receive Date: 20250530
  Receipt Date: 20250530
  Transmission Date: 20250717
  Serious: Yes (Hospitalization, Other)
  Sender: ABBVIE
  Company Number: AR-ABBVIE-6301565

PATIENT
  Age: 64 Year
  Sex: Male

DRUGS (1)
  1. SKYRIZI [Suspect]
     Active Substance: RISANKIZUMAB-RZAA
     Indication: Product used for unknown indication
     Route: 042
     Dates: start: 20250424

REACTIONS (1)
  - Metastases to meninges [Not Recovered/Not Resolved]

NARRATIVE: CASE EVENT DATE: 20250101
